FAERS Safety Report 21033198 (Version 1)
Quarter: 2022Q3

REPORT INFORMATION
  Report Type: Spontaneous
  Country: US (occurrence: None)
  Receive Date: 20220701
  Receipt Date: 20220701
  Transmission Date: 20221027
  Serious: Yes (Other)
  Sender: FDA-Public Use
  Company Number: 2022A234866

PATIENT
  Age: 779 Month
  Sex: Female

DRUGS (5)
  1. BUDESONIDE\FORMOTEROL FUMARATE DIHYDRATE [Suspect]
     Active Substance: BUDESONIDE\FORMOTEROL FUMARATE DIHYDRATE
     Indication: Asthma
     Dosage: 160MCG/4.5MCG TAKEN AS 2 PUFFS TWICE A DAY
     Route: 055
     Dates: start: 202011
  2. SYMBICORT [Suspect]
     Active Substance: BUDESONIDE\FORMOTEROL FUMARATE DIHYDRATE
     Indication: Asthma
     Route: 055
     Dates: end: 20220331
  3. SYMBICORT [Suspect]
     Active Substance: BUDESONIDE\FORMOTEROL FUMARATE DIHYDRATE
     Indication: Asthma
     Dosage: 160MCG/4.5MCG TO 2 PUFFS ONCE PER DAY IN THE MORNING
     Route: 055
     Dates: start: 20220401
  4. ASMANEX [Concomitant]
     Active Substance: MOMETASONE FUROATE
     Dates: end: 20220401
  5. COVID VACCINE [Concomitant]

REACTIONS (4)
  - Skin cancer [Unknown]
  - Rash [Not Recovered/Not Resolved]
  - Bronchial disorder [Not Recovered/Not Resolved]
  - Drug ineffective [Recovered/Resolved]

NARRATIVE: CASE EVENT DATE: 20201101
